FAERS Safety Report 5875150-3 (Version None)
Quarter: 2008Q3

REPORT INFORMATION
  Report Type: 
  Country: None (occurrence: None)
  Receive Date: 20080908
  Receipt Date: 20080908
  Transmission Date: 20090109
  Serious: Yes (Hospitalization)
  Sender: FDA-Public Use
  Company Number: None

PATIENT
  Sex: Female
  Weight: 54 kg

DRUGS (2)
  1. FLUOROURACIL [Suspect]
     Dosage: 353 MG
     Dates: end: 20080825
  2. ELOXATIN [Suspect]
     Dosage: 78 MG
     Dates: end: 20080825

REACTIONS (10)
  - ASTHENIA [None]
  - CHEST PAIN [None]
  - CHILLS [None]
  - FATIGUE [None]
  - GASTROENTERITIS RADIATION [None]
  - HEADACHE [None]
  - NAUSEA [None]
  - OROPHARYNGEAL PAIN [None]
  - PYREXIA [None]
  - RECTAL HAEMORRHAGE [None]
